FAERS Safety Report 7502335-2 (Version None)
Quarter: 2011Q2

REPORT INFORMATION
  Report Type: 
  Country: None (occurrence: None)
  Receive Date: 20110525
  Receipt Date: 20110516
  Transmission Date: 20111010
  Serious: Yes (Hospitalization, Other)
  Sender: FDA-Public Use
  Company Number: US-ELI_LILLY_AND_COMPANY-US201009003156

PATIENT
  Age: 48 Year
  Sex: Female
  Weight: 73.424 kg

DRUGS (11)
  1. HYDROCODONE [Concomitant]
     Dosage: UNK, UNKNOWN
     Route: 065
     Dates: start: 20100619
  2. ACTIQ [Concomitant]
     Dosage: UNK, UNKNOWN
     Route: 065
     Dates: start: 20100811, end: 20100817
  3. DOXORUBICIN HCL [Concomitant]
     Indication: RENAL CELL CARCINOMA
     Dosage: 90 MG, EVERY 2 WEEKS
     Route: 042
     Dates: start: 20100811
  4. DEXAMETHASONE [Concomitant]
     Dosage: UNK, UNKNOWN
     Route: 065
     Dates: start: 20100805, end: 20100818
  5. GEMZAR [Suspect]
     Indication: RENAL CELL CARCINOMA
     Dosage: 2080 MG, EVERY 2 WEEKS
     Route: 042
     Dates: start: 20100811, end: 20100928
  6. AXITINIB [Concomitant]
     Indication: METASTATIC RENAL CELL CARCINOMA
     Dosage: 10 MG, 2/D
     Route: 048
     Dates: start: 20100216
  7. NEULASTA [Concomitant]
     Indication: RENAL CELL CARCINOMA
     Dosage: 6 MG, UNK
     Route: 058
     Dates: start: 20100813
  8. VAGIFEM [Concomitant]
     Dosage: UNK, UNKNOWN
     Route: 065
     Dates: start: 20081001
  9. EFFEXOR [Concomitant]
     Dosage: UNK, UNKNOWN
     Route: 065
     Dates: start: 20100608
  10. NEXIUM [Concomitant]
     Dosage: UNK, UNKNOWN
     Route: 065
     Dates: start: 20100608
  11. MIRALAX [Concomitant]
     Dosage: UNK, UNKNOWN
     Route: 065
     Dates: start: 20100721

REACTIONS (6)
  - DEHYDRATION [None]
  - OFF LABEL USE [None]
  - SEPTIC SHOCK [None]
  - VOMITING [None]
  - DIARRHOEA [None]
  - NEUTROPENIA [None]
